FAERS Safety Report 5167756-4 (Version None)
Quarter: 2006Q4

REPORT INFORMATION
  Report Type: 
  Country: None (occurrence: None)
  Receive Date: 20061204
  Receipt Date: 20061204
  Transmission Date: 20070319
  Serious: No
  Sender: FDA-Public Use
  Company Number: None

PATIENT
  Age: 75 Year
  Sex: Female
  Weight: 31.7518 kg

DRUGS (1)
  1. VOLTAREN [Suspect]

REACTIONS (1)
  - NO ADVERSE EFFECT [None]
